FAERS Safety Report 5524411-6 (Version None)
Quarter: 2007Q4

REPORT INFORMATION
  Report Type: 
  Country: None (occurrence: None)
  Receive Date: 20071121
  Receipt Date: 20071114
  Transmission Date: 20080405
  Serious: Yes (Other)
  Sender: FDA-Public Use
  Company Number: US-PFIZER INC-2007096968

PATIENT
  Sex: Female
  Weight: 54.545 kg

DRUGS (2)
  1. CHANTIX [Suspect]
     Indication: SMOKING CESSATION THERAPY
     Dosage: TEXT:1MG
  2. NUTRIENTS WITHOUT PHENYLALANINE [Concomitant]

REACTIONS (7)
  - ANGER [None]
  - ASTHENIA [None]
  - CHILLS [None]
  - LOSS OF CONSCIOUSNESS [None]
  - NAUSEA [None]
  - STRESS [None]
  - WRONG TECHNIQUE IN DRUG USAGE PROCESS [None]
